FAERS Safety Report 7729012-7 (Version None)
Quarter: 2011Q3

REPORT INFORMATION
  Report Type: 
  Country: None (occurrence: None)
  Receive Date: 20110831
  Receipt Date: 20110818
  Transmission Date: 20111222
  Serious: Yes (Hospitalization, Other)
  Sender: FDA-Public Use
  Company Number: JPI-P-016462

PATIENT
  Age: 44 Year
  Sex: Female
  Weight: 62.1428 kg

DRUGS (9)
  1. VITAMIN TAB [Concomitant]
  2. FISH OIL [Concomitant]
  3. XYREM [Suspect]
     Indication: NARCOLEPSY
     Dosage: 3 GM (1.5 GM, 2 IN 1 D), ORAL
     Route: 048
     Dates: start: 20110802, end: 20110801
  4. XYREM [Suspect]
     Indication: HYPERSOMNIA
     Dosage: 3 GM (1.5 GM, 2 IN 1 D), ORAL
     Route: 048
     Dates: start: 20110802, end: 20110801
  5. WELLBUTRIN [Concomitant]
  6. CYMBALTA [Concomitant]
  7. ATIVAN [Concomitant]
  8. VITAMIN D [Concomitant]
  9. SYNTHROID [Concomitant]

REACTIONS (4)
  - INTESTINAL OBSTRUCTION [None]
  - HEADACHE [None]
  - SOMNOLENCE [None]
  - SLUGGISHNESS [None]
